FAERS Safety Report 7766981-3 (Version None)
Quarter: 2011Q3

REPORT INFORMATION
  Report Type: 
  Country: None (occurrence: None)
  Receive Date: 20110922
  Receipt Date: 20110916
  Transmission Date: 20111222
  Serious: No
  Sender: FDA-Public Use
  Company Number: PHHY2011JP81780

PATIENT
  Age: 86 Year
  Sex: Female

DRUGS (5)
  1. PURSENNID [Concomitant]
     Dosage: UNK UKN, UNK
  2. GRAMALIL [Concomitant]
     Dosage: UNK UKN, UNK
  3. GRAMALIL [Concomitant]
     Dosage: UNK UKN, UNK
  4. HALCION [Concomitant]
     Dosage: UNK UKN, UNK
  5. EXELON [Suspect]
     Dosage: 4.5 MG, DAILY
     Route: 062
     Dates: start: 20110810, end: 20110906

REACTIONS (1)
  - AGITATION [None]
